FAERS Safety Report 15939029 (Version 1)
Quarter: 2019Q1

REPORT INFORMATION
  Report Type: Spontaneous
  Country: US (occurrence: US)
  Receive Date: 20190208
  Receipt Date: 20190208
  Transmission Date: 20190417
  Serious: No
  Sender: FDA-Public Use
  Company Number: US-PFIZER INC-2019048414

PATIENT
  Age: 80 Year
  Sex: Female
  Weight: 79 kg

DRUGS (2)
  1. IBRANCE [Suspect]
     Active Substance: PALBOCICLIB
     Indication: BREAST CANCER
     Dosage: 125 MG, 1X/DAY[ONE EVERY NIGHT]
     Route: 048
     Dates: start: 201710
  2. LETROZOLE. [Suspect]
     Active Substance: LETROZOLE
     Indication: HORMONE SUPPRESSION THERAPY
     Dosage: UNK, 1X/DAY[UNKNOWN DOSAGE, MAYBE 5 MG, ONE A NIGHT]
     Dates: start: 201710

REACTIONS (6)
  - Gait disturbance [Unknown]
  - Tendonitis [Unknown]
  - Dyspnoea [Recovering/Resolving]
  - Increased appetite [Unknown]
  - Condition aggravated [Recovering/Resolving]
  - Fatigue [Recovering/Resolving]

NARRATIVE: CASE EVENT DATE: 201711
